FAERS Safety Report 10959173 (Version 4)
Quarter: 2015Q2

REPORT INFORMATION
  Report Type: Spontaneous
  Country: US (occurrence: US)
  Receive Date: 20150327
  Receipt Date: 20150524
  Transmission Date: 20150821
  Serious: Yes (Other)
  Sender: FDA-Public Use
  Company Number: US-JNJFOC-20141212803

PATIENT

DRUGS (1)
  1. FENTANYL. [Suspect]
     Active Substance: FENTANYL
     Indication: PAIN
     Dosage: 12.5UG/HR TO 150 UG/HR
     Route: 062

REACTIONS (6)
  - Hypotension [Unknown]
  - Respiratory depression [Unknown]
  - Bradycardia [Unknown]
  - Sedation [Unknown]
  - Mental status changes [Unknown]
  - Constipation [Unknown]
